FAERS Safety Report 17236927 (Version 1)
Quarter: 2019Q4

REPORT INFORMATION
  Report Type: Spontaneous
  Country: US (occurrence: US)
  Receive Date: 20191211
  Receipt Date: 20191211
  Transmission Date: 20200122
  Serious: No
  Sender: FDA-Public Use
  Company Number: None

PATIENT
  Age: 61 Year
  Sex: Male

DRUGS (1)
  1. MYCOPHENOLATE MOFETIL 500MG TABLET [Suspect]
     Active Substance: MYCOPHENOLATE MOFETIL
     Dosage: ?          OTHER DOSE:2 TABLETS;?
     Route: 048
     Dates: start: 2019

REACTIONS (3)
  - Cytomegalovirus infection [None]
  - White blood cell count decreased [None]
  - Renal impairment [None]

NARRATIVE: CASE EVENT DATE: 20191211
